FAERS Safety Report 18845722 (Version 2)
Quarter: 2021Q1

REPORT INFORMATION
  Report Type: Spontaneous
  Country: US (occurrence: US)
  Receive Date: 20210204
  Receipt Date: 20210225
  Transmission Date: 20210419
  Serious: No
  Sender: FDA-Public Use
  Company Number: US-VERTEX PHARMACEUTICALS-2021-001488

PATIENT
  Age: 21 Year
  Sex: Male

DRUGS (2)
  1. TRIKAFTA [Suspect]
     Active Substance: ELEXACAFTOR\IVACAFTOR\TEZACAFTOR
     Dosage: 2 TABS(ELEXACAFTOR/TEZACAFTOR/IVACAFTOR)AM; NO IVACAFTOR
     Route: 048
     Dates: start: 20200111
  2. TRIKAFTA [Suspect]
     Active Substance: ELEXACAFTOR\IVACAFTOR\TEZACAFTOR
     Indication: CYSTIC FIBROSIS
     Dosage: 2 TABS(ELEXACAFTOR/TEZACAFTOR/IVACAFTOR)AM;1 BLUE TAB(IVACAFTOR)PM
     Route: 048
     Dates: start: 20200126, end: 20210110

REACTIONS (1)
  - Blood bilirubin increased [Recovering/Resolving]

NARRATIVE: CASE EVENT DATE: 20200728
